FAERS Safety Report 5140637-8 (Version None)
Quarter: 2006Q4

REPORT INFORMATION
  Report Type: 
  Country: None (occurrence: None)
  Receive Date: 20061025
  Receipt Date: 20061011
  Transmission Date: 20070319
  Serious: Yes (Congenital Anomaly)
  Sender: FDA-Public Use
  Company Number: 2005-08-1669

PATIENT
  Sex: Female
  Weight: 2.66 kg

DRUGS (2)
  1. PEG-INTRON [Suspect]
     Indication: HEPATITIS C
     Dates: start: 20050301
  2. REBETOL [Suspect]
     Indication: HEPATITIS C
     Dosage: PO
     Route: 048
     Dates: start: 20050301

REACTIONS (3)
  - APGAR SCORE LOW [None]
  - PULMONARY ARTERY STENOSIS CONGENITAL [None]
  - TRANSMISSION OF DRUG VIA SEMEN [None]
